FAERS Safety Report 8572648-4 (Version None)
Quarter: 2012Q3

REPORT INFORMATION
  Report Type: 
  Country: None (occurrence: None)
  Receive Date: 20120806
  Receipt Date: 20120502
  Transmission Date: 20120928
  Serious: No
  Sender: FDA-Public Use
  Company Number: US-009507513-2012SP025015

PATIENT

DRUGS (3)
  1. LEVOTHROID [Concomitant]
     Indication: AUTOIMMUNE THYROIDITIS
     Dosage: UNK UNK, UNKNOWN
  2. AFRIN [Suspect]
     Indication: PRODUCT USED FOR UNKNOWN INDICATION
     Dosage: UNK UNK, ONCE
     Route: 045
     Dates: start: 20120301
  3. AFRIN [Suspect]
     Indication: MEDICAL OBSERVATION

REACTIONS (1)
  - NASAL DISCOMFORT [None]
